FAERS Safety Report 23101197 (Version 1)
Quarter: 2023Q4

REPORT INFORMATION
  Report Type: Spontaneous
  Country: US (occurrence: US)
  Receive Date: 20231024
  Receipt Date: 20231024
  Transmission Date: 20240110
  Serious: Yes (Other)
  Sender: FDA-Public Use
  Company Number: US-AMERICAN REGENT INC-2023002437

PATIENT
  Age: 76 Year
  Sex: Male

DRUGS (1)
  1. TRANEXAMIC ACID [Suspect]
     Active Substance: TRANEXAMIC ACID
     Indication: Haemorrhage prophylaxis
     Dosage: 300 MILLIGRAM, SINGLE
     Route: 037

REACTIONS (14)
  - Hypertension [Unknown]
  - Tachycardia [Unknown]
  - Hypoxia [Unknown]
  - Shock [Unknown]
  - Lactic acidosis [Unknown]
  - Troponin increased [Unknown]
  - Ejection fraction decreased [Unknown]
  - Respiratory failure [Unknown]
  - Myoclonus [Recovering/Resolving]
  - Sinus tachycardia [Unknown]
  - Ventricular tachycardia [Recovered/Resolved]
  - Medication error [Unknown]
  - Incorrect route of product administration [Unknown]
  - Product use in unapproved indication [Unknown]
